FAERS Safety Report 25382815 (Version 6)
Quarter: 2025Q4

REPORT INFORMATION
  Report Type: Report from Study
  Country: US (occurrence: None)
  Receive Date: 20250602
  Receipt Date: 20251228
  Transmission Date: 20260118
  Serious: Yes (Hospitalization, Other)
  Sender: UCB
  Company Number: US-UCBSA-2025006615

PATIENT
  Age: 19 Year
  Weight: 44 kg

DRUGS (16)
  1. FENFLURAMINE [Suspect]
     Active Substance: FENFLURAMINE
     Indication: Lennox-Gastaut syndrome
     Dosage: 0.58 MILLIGRAM PER KILOGRAM PER DAY (TOTAL DOSE OF 26.4  MILLIGRAM PER DAY)
  2. FENFLURAMINE [Suspect]
     Active Substance: FENFLURAMINE
     Dosage: 6 MILLILITER, 2X/DAY (BID)
     Route: 061
  3. FENFLURAMINE [Suspect]
     Active Substance: FENFLURAMINE
     Dosage: 6 MILLILITER, 2X/DAY (BID)
  4. FENFLURAMINE [Suspect]
     Active Substance: FENFLURAMINE
     Dosage: 26.4 MILLIGRAM PER DAY
  5. BANZEL [Concomitant]
     Active Substance: RUFINAMIDE
     Indication: Product used for unknown indication
     Dosage: 400 MILLIGRAM
  6. FYCOMPA [Concomitant]
     Active Substance: PERAMPANEL
     Indication: Seizure
     Dosage: 8 MILLIGRAM, ONCE DAILY (QD)
     Route: 061
  7. LAMOTRIGINE [Concomitant]
     Active Substance: LAMOTRIGINE
     Indication: Seizure
     Dosage: 100 MILLIGRAM
     Route: 061
  8. CLONIDINE [Concomitant]
     Active Substance: CLONIDINE
     Indication: Seizure
     Dosage: 0.2 MILLIGRAM, ONCE DAILY (QD)
     Route: 061
  9. PENTASA [Concomitant]
     Active Substance: MESALAMINE
     Indication: Product used for unknown indication
     Dosage: UNK
  10. ONFI [Concomitant]
     Active Substance: CLOBAZAM
     Indication: Epilepsy
     Dosage: 20 MILLIGRAM, 2X/DAY (BID) G-TUBE
  11. CLOBAZAM [Concomitant]
     Active Substance: CLOBAZAM
     Indication: Product used for unknown indication
     Dosage: 20 MILLIGRAM
     Route: 061
  12. PURE BAKING SODA [Concomitant]
     Active Substance: SODIUM BICARBONATE
     Indication: Product used for unknown indication
  13. PROPRANOLOL HYDROCHLORIDE [Concomitant]
     Active Substance: PROPRANOLOL HYDROCHLORIDE
     Indication: Seizure
     Dosage: 20 MILLIGRAM, 2X/DAY (BID)
     Route: 061
  14. PROPRANOLOL HYDROCHLORIDE [Concomitant]
     Active Substance: PROPRANOLOL HYDROCHLORIDE
     Dosage: 10 MILLIGRAM, 2X/DAY (BID)
     Route: 061
  15. CLONAZEPAM [Concomitant]
     Active Substance: CLONAZEPAM
     Indication: Seizure
     Dosage: UNK
  16. FENTANYL [Concomitant]
     Active Substance: FENTANYL
     Indication: Product used for unknown indication
     Dosage: 2.2 MILLIGRAM PER ML

REACTIONS (26)
  - Pneumonia [Recovered/Resolved]
  - Tricuspid valve incompetence [Unknown]
  - Pyrexia [Not Recovered/Not Resolved]
  - Staphylococcal infection [Not Recovered/Not Resolved]
  - Mitral valve incompetence [Unknown]
  - Cortical visual impairment [Unknown]
  - Pulmonary valve incompetence [Unknown]
  - Sleep apnoea syndrome [Not Recovered/Not Resolved]
  - Mitral valve prolapse [Unknown]
  - Blood sodium increased [Recovering/Resolving]
  - Urinary tract infection [Not Recovered/Not Resolved]
  - Dyschezia [Not Recovered/Not Resolved]
  - Aortic dilatation [Unknown]
  - Dyspnoea [Unknown]
  - Dermatitis diaper [Unknown]
  - Fungal infection [Unknown]
  - Blood pressure increased [Unknown]
  - Scoliosis [Unknown]
  - Left ventricular hypertrophy [Unknown]
  - Ventricular hypertrophy [Unknown]
  - Tachycardia [Unknown]
  - Hypertension [Unknown]
  - Defect conduction intraventricular [Unknown]
  - Electrocardiogram abnormal [Unknown]
  - Skin disorder [Unknown]
  - Joint swelling [Unknown]
